FAERS Safety Report 7718463-2 (Version None)
Quarter: 2011Q3

REPORT INFORMATION
  Report Type: 
  Country: None (occurrence: None)
  Receive Date: 20110830
  Receipt Date: 20110830
  Transmission Date: 20111222
  Serious: Yes (Death, Other)
  Sender: FDA-Public Use
  Company Number: PHHY2011CN76883

PATIENT
  Sex: Male

DRUGS (2)
  1. GLEEVEC [Suspect]
     Indication: CHRONIC MYELOID LEUKAEMIA
     Dosage: 400 MG, ONCE A DAY
     Route: 048
     Dates: start: 20100101
  2. ANTI-INFECTIVES [Concomitant]
     Indication: PNEUMONIA
     Dosage: UNK UKN, UNK

REACTIONS (4)
  - PRODUCTIVE COUGH [None]
  - CHRONIC MYELOID LEUKAEMIA [None]
  - RESPIRATORY FAILURE [None]
  - PNEUMONIA [None]
